FAERS Safety Report 24611418 (Version 1)
Quarter: 2024Q4

REPORT INFORMATION
  Report Type: Report from Study
  Country: US (occurrence: US)
  Receive Date: 20241113
  Receipt Date: 20241113
  Transmission Date: 20250114
  Serious: Yes (Other)
  Sender: ARGENX BVBA
  Company Number: US-ARGENX-2024-ARGX-US010043

PATIENT

DRUGS (1)
  1. EFGARTIGIMOD ALFA-FCAB [Suspect]
     Active Substance: EFGARTIGIMOD ALFA-FCAB
     Indication: Myasthenia gravis
     Dosage: 590 MG
     Route: 042
     Dates: end: 20241101

REACTIONS (8)
  - Grunting [Not Recovered/Not Resolved]
  - Tearfulness [Not Recovered/Not Resolved]
  - Anxiety [Not Recovered/Not Resolved]
  - Vital functions abnormal [Not Recovered/Not Resolved]
  - Oxygen saturation decreased [Not Recovered/Not Resolved]
  - Chest pain [Not Recovered/Not Resolved]
  - Arthralgia [Not Recovered/Not Resolved]
  - Ill-defined disorder [Not Recovered/Not Resolved]

NARRATIVE: CASE EVENT DATE: 20241101
